FAERS Safety Report 20844806 (Version 2)
Quarter: 2022Q2

REPORT INFORMATION
  Report Type: Report from Study
  Country: US (occurrence: US)
  Receive Date: 20220518
  Receipt Date: 20220524
  Transmission Date: 20220721
  Serious: Yes (Hospitalization)
  Sender: FDA-Public Use
  Company Number: US-BAYER-2022A068627

PATIENT
  Age: 53 Year
  Sex: Male
  Weight: 128.8 kg

DRUGS (5)
  1. ADEMPAS [Interacting]
     Active Substance: RIOCIGUAT
     Indication: Pulmonary arterial hypertension
     Dosage: UNK
     Dates: start: 20220222
  2. ADEMPAS [Interacting]
     Active Substance: RIOCIGUAT
     Indication: Pulmonary arterial hypertension
     Dosage: 2 MG, TID
     Route: 048
  3. SILDENAFIL [Interacting]
     Active Substance: SILDENAFIL
  4. VELETRI [Concomitant]
     Active Substance: EPOPROSTENOL
  5. OPSUMIT [Concomitant]
     Active Substance: MACITENTAN

REACTIONS (4)
  - Hospitalisation [None]
  - Headache [Recovered/Resolved]
  - Pain [None]
  - Arthralgia [None]

NARRATIVE: CASE EVENT DATE: 20220501
